FAERS Safety Report 23110209 (Version 2)
Quarter: 2023Q4

REPORT INFORMATION
  Report Type: Report from Study
  Country: FR (occurrence: FR)
  Receive Date: 20231026
  Receipt Date: 20231107
  Transmission Date: 20240110
  Serious: Yes (Hospitalization)
  Sender: FDA-Public Use
  Company Number: FR-BoehringerIngelheim-2023-BI-255213

PATIENT
  Age: 51 Year
  Sex: Female
  Weight: 52 kg

DRUGS (6)
  1. SPESOLIMAB [Suspect]
     Active Substance: SPESOLIMAB
     Indication: Pustular psoriasis
     Route: 058
     Dates: start: 20230802
  2. SPESOLIMAB [Suspect]
     Active Substance: SPESOLIMAB
     Route: 042
     Dates: start: 20230811, end: 20230811
  3. ALBUTEROL [Concomitant]
     Active Substance: ALBUTEROL
     Indication: Asthma
     Dates: start: 20221130
  4. EBASTINE [Concomitant]
     Active Substance: EBASTINE
     Indication: Rhinitis allergic
     Route: 048
     Dates: start: 20221130
  5. BILASTINE [Concomitant]
     Active Substance: BILASTINE
     Indication: Urticaria
     Dates: start: 20230807, end: 20230811
  6. LEVOCETIRIZINE [Concomitant]
     Active Substance: LEVOCETIRIZINE
     Indication: Urticaria
     Dates: start: 20230807, end: 20230811

REACTIONS (1)
  - Pustular psoriasis [Recovered/Resolved]

NARRATIVE: CASE EVENT DATE: 20230807
